FAERS Safety Report 5210251-4 (Version None)
Quarter: 2007Q1

REPORT INFORMATION
  Report Type: 
  Country: None (occurrence: None)
  Receive Date: 20070112
  Receipt Date: 20070112
  Transmission Date: 20070707
  Serious: Yes (Hospitalization)
  Sender: FDA-Public Use
  Company Number: None

PATIENT
  Age: 22 Year
  Sex: Female
  Weight: 100 kg

DRUGS (1)
  1. YASMIN [Suspect]
     Indication: ORAL CONTRACEPTION
     Dosage: PO
     Route: 048

REACTIONS (4)
  - CHEST PAIN [None]
  - DYSPNOEA [None]
  - FIBRIN D DIMER INCREASED [None]
  - PULMONARY EMBOLISM [None]
